FAERS Safety Report 19591407 (Version 6)
Quarter: 2023Q1

REPORT INFORMATION
  Report Type: Other
  Country: RU (occurrence: None)
  Receive Date: 20210721
  Receipt Date: 20230102
  Transmission Date: 20230417
  Serious: No
  Sender: FDA-Public Use
  Company Number: RU-ROCHE-2741264

PATIENT
  Age: 41 Year
  Sex: Female
  Weight: 65 kg

DRUGS (15)
  1. OCRELIZUMAB [Suspect]
     Active Substance: OCRELIZUMAB
     Indication: Primary progressive multiple sclerosis
     Dosage: 300 MG/250 ML
     Route: 042
     Dates: start: 20191217, end: 20191217
  2. OCRELIZUMAB [Suspect]
     Active Substance: OCRELIZUMAB
     Dosage: 300 MG/250 ML, 260 ML
     Route: 042
     Dates: start: 20191231, end: 20191231
  3. OCRELIZUMAB [Suspect]
     Active Substance: OCRELIZUMAB
     Dosage: 600 MG/500 ML, 520 ML
     Route: 042
     Dates: start: 20200617, end: 20200617
  4. OCRELIZUMAB [Suspect]
     Active Substance: OCRELIZUMAB
     Dosage: 600 MG/500 ML, 520 ML
     Route: 042
     Dates: start: 20201225, end: 20201225
  5. OCRELIZUMAB [Suspect]
     Active Substance: OCRELIZUMAB
     Dosage: SUBSEQUENT DOSE ON 27/JUN/2022.
     Route: 042
     Dates: start: 20211227
  6. OCRELIZUMAB [Suspect]
     Active Substance: OCRELIZUMAB
     Route: 042
     Dates: start: 20210625
  7. OCRELIZUMAB [Suspect]
     Active Substance: OCRELIZUMAB
     Route: 042
     Dates: start: 20221227
  8. CHLOROPYRAMINE [Concomitant]
     Active Substance: CHLOROPYRAMINE
     Indication: Premedication
     Dosage: RECEIVED THE SUBSEQUENT DOSE ON 31/DEC/2019, 17/JUN/2020, 25/DEC/2020 AND 27/DEC/2022.
     Route: 042
     Dates: start: 20191217
  9. CHLOROPYRAMINE [Concomitant]
     Active Substance: CHLOROPYRAMINE
     Route: 042
     Dates: start: 20210625, end: 20210625
  10. CHLOROPYRAMINE [Concomitant]
     Active Substance: CHLOROPYRAMINE
     Route: 042
     Dates: start: 20211227, end: 20211227
  11. CHLOROPYRAMINE [Concomitant]
     Active Substance: CHLOROPYRAMINE
     Dosage: RECEIVED THE SUBSEQUENT DOSE ON 31/DEC/2019, 17/JUN/2020 AND 25/DEC/2020.
     Route: 042
     Dates: start: 20220627, end: 20220627
  12. METHYLPREDNISOLONE [Concomitant]
     Active Substance: METHYLPREDNISOLONE
     Indication: Premedication
     Dosage: RECEIVED THE SUBSEQUENT DOSE ON: 31/DEC/2019, 17/JUN/2020, 25/DEC/2020 AND 27/DEC/2022.
     Route: 042
     Dates: start: 20191217
  13. METHYLPREDNISOLONE [Concomitant]
     Active Substance: METHYLPREDNISOLONE
     Route: 042
     Dates: start: 20210625, end: 20210625
  14. METHYLPREDNISOLONE [Concomitant]
     Active Substance: METHYLPREDNISOLONE
     Route: 042
     Dates: start: 20211227, end: 20211227
  15. METHYLPREDNISOLONE [Concomitant]
     Active Substance: METHYLPREDNISOLONE
     Route: 042
     Dates: start: 20220627, end: 20220627

REACTIONS (4)
  - Anti-thyroid antibody increased [Not Recovered/Not Resolved]
  - Blood thyroid stimulating hormone increased [Recovered/Resolved]
  - Anaemia [Not Recovered/Not Resolved]
  - COVID-19 [Recovered/Resolved]

NARRATIVE: CASE EVENT DATE: 20201203
